FAERS Safety Report 10289885 (Version 1)
Quarter: 2014Q3

REPORT INFORMATION
  Report Type: Spontaneous
  Country: TH (occurrence: None)
  Receive Date: 20140703
  Receipt Date: 20140703
  Transmission Date: 20150326
  Serious: Yes (Other)
  Sender: FDA-Public Use
  Company Number: 2014SA078935

PATIENT
  Age: 39 Year
  Sex: Female

DRUGS (4)
  1. OTHER LIPID MODIFYING AGENTS [Concomitant]
     Active Substance: UNSPECIFIED INGREDIENT
  2. LANTUS [Suspect]
     Active Substance: INSULIN GLARGINE
     Indication: TYPE 1 DIABETES MELLITUS
     Dosage: 36 UNIT(S)?TIME TO ONSET: FEW YEAR(S)
     Route: 058
     Dates: start: 2012
  3. APIDRA [Suspect]
     Active Substance: INSULIN GLULISINE
     Indication: TYPE 1 DIABETES MELLITUS
     Dosage: 10 UNIT(S) ; 3 TIMES A DAY,?TIME TO ONSET: FEW YEAR(S)
     Route: 058
     Dates: start: 2012
  4. ANTIHYPERTENSIVES [Concomitant]
     Active Substance: UNSPECIFIED INGREDIENT

REACTIONS (2)
  - Abortion induced [None]
  - Pregnancy [None]

NARRATIVE: CASE EVENT DATE: 20140614
